FAERS Safety Report 11719511 (Version 3)
Quarter: 2016Q1

REPORT INFORMATION
  Report Type: Spontaneous
  Country: US (occurrence: US)
  Receive Date: 20151110
  Receipt Date: 20160114
  Transmission Date: 20160525
  Serious: No
  Sender: FDA-Public Use
  Company Number: US-MISSION PHARMACAL COMPANY-1043982

PATIENT
  Age: 54 Year
  Sex: Female

DRUGS (2)
  1. PREDNISONE. [Concomitant]
     Active Substance: PREDNISONE
     Route: 065
  2. THIOLA [Suspect]
     Active Substance: TIOPRONIN
     Indication: AMINO ACID LEVEL DECREASED
     Route: 065
     Dates: start: 20150116

REACTIONS (6)
  - Arthralgia [Unknown]
  - Lip discolouration [Unknown]
  - Oral mucosal discolouration [Unknown]
  - Chapped lips [Unknown]
  - Tongue discolouration [Unknown]
  - Fatigue [Unknown]
